FAERS Safety Report 8045713-8 (Version None)
Quarter: 2012Q1

REPORT INFORMATION
  Report Type: 
  Country: None (occurrence: None)
  Receive Date: 20120113
  Receipt Date: 20120105
  Transmission Date: 20120608
  Serious: Yes (Death)
  Sender: FDA-Public Use
  Company Number: DK-PFIZER INC-2011256685

PATIENT
  Age: 69 Year
  Sex: Female

DRUGS (10)
  1. CORDARONE [Suspect]
     Indication: ATRIAL FIBRILLATION
     Dosage: 200 MG, DAILY
     Route: 048
     Dates: start: 20110414
  2. WARFARIN [Concomitant]
  3. CIPROFLOXACIN [Concomitant]
     Indication: URINARY TRACT INFECTION
     Dosage: UNK
     Dates: start: 20110414
  4. FEXOFENADINE HCL [Concomitant]
     Indication: RHINITIS ALLERGIC
  5. IBUPROFEN [Concomitant]
     Indication: PAIN
     Dosage: UNK
     Dates: start: 20110415
  6. PAMOL [Concomitant]
  7. ATORVASTATIN [Concomitant]
  8. ZOPICLONE [Concomitant]
     Indication: INSOMNIA
  9. PRIMPERAN TAB [Interacting]
     Indication: PRODUCT USED FOR UNKNOWN INDICATION
     Dosage: UNK
     Dates: start: 20110414
  10. CODEINE [Concomitant]
     Dosage: UNK
     Dates: start: 20110414

REACTIONS (4)
  - DRUG INTERACTION [None]
  - DRUG LEVEL INCREASED [None]
  - TOXICITY TO VARIOUS AGENTS [None]
  - ARRHYTHMIA [None]
